FAERS Safety Report 22290936 (Version 1)
Quarter: 2023Q2

REPORT INFORMATION
  Report Type: Spontaneous
  Country: US (occurrence: US)
  Receive Date: 20230506
  Receipt Date: 20230506
  Transmission Date: 20230722
  Serious: No
  Sender: FDA-Public Use
  Company Number: US-JNJFOC-20230511024

PATIENT
  Sex: Female
  Weight: 69.462 kg

DRUGS (1)
  1. XARELTO [Suspect]
     Active Substance: RIVAROXABAN
     Indication: Thrombosis
     Route: 048
     Dates: start: 2023

REACTIONS (3)
  - Headache [Unknown]
  - Dizziness [Unknown]
  - Loss of personal independence in daily activities [Unknown]
